FAERS Safety Report 25129506 (Version 1)
Quarter: 2025Q1

REPORT INFORMATION
  Report Type: Spontaneous
  Country: US (occurrence: US)
  Receive Date: 20250327
  Receipt Date: 20250327
  Transmission Date: 20250408
  Serious: No
  Sender: PFIZER
  Company Number: US-PFIZER INC-202500065029

PATIENT
  Age: 41 Year
  Sex: Female

DRUGS (1)
  1. PAXLOVID [Suspect]
     Active Substance: NIRMATRELVIR\RITONAVIR
     Indication: COVID-19 treatment
     Dates: start: 20250324

REACTIONS (4)
  - Lip erythema [Unknown]
  - Lip pain [Unknown]
  - Lip blister [Unknown]
  - Erythema [Unknown]

NARRATIVE: CASE EVENT DATE: 20250301
